FAERS Safety Report 4303278-8 (Version None)
Quarter: 2004Q1

REPORT INFORMATION
  Report Type: 
  Country: None (occurrence: None)
  Receive Date: 20040223
  Receipt Date: 20040212
  Transmission Date: 20041129
  Serious: Yes (Hospitalization)
  Sender: FDA-Public Use
  Company Number: 2004197055JP

PATIENT
  Age: 69 Year
  Sex: Male
  Weight: 80 kg

DRUGS (6)
  1. CABERGOLINE [Suspect]
     Indication: PARKINSON'S DISEASE
     Dosage: 3 MG DAILY, ORAL
     Route: 048
     Dates: start: 20000106, end: 20040201
  2. LUVOX [Concomitant]
  3. AKINETON [Concomitant]
  4. MENESIT [Concomitant]
  5. SERMION [Concomitant]
  6. BLOPRESS            (CANDESARTAN CILEXETIL) [Concomitant]

REACTIONS (7)
  - BLOOD CREATINE PHOSPHOKINASE INCREASED [None]
  - BLOOD LACTATE DEHYDROGENASE INCREASED [None]
  - CARDIAC FAILURE [None]
  - CONDITION AGGRAVATED [None]
  - MYOGLOBIN BLOOD INCREASED [None]
  - OEDEMA PERIPHERAL [None]
  - URINE OUTPUT DECREASED [None]
